FAERS Safety Report 26179681 (Version 1)
Quarter: 2025Q4

REPORT INFORMATION
  Report Type: Spontaneous
  Country: US (occurrence: US)
  Receive Date: 20251219
  Receipt Date: 20251219
  Transmission Date: 20260117
  Serious: Yes (Other)
  Sender: AUROBINDO
  Company Number: US-APLCMS-2025EM648125

PATIENT
  Age: 63 Year
  Sex: Male
  Weight: 62 kg

DRUGS (4)
  1. LIDOCAINE [Suspect]
     Active Substance: LIDOCAINE
     Indication: Analgesic therapy
     Dosage: 3 ML/KG INSTEAD OF THE INTENDED USUAL DOSE OF 3 MG/KG, RESULTING IN ADMINISTRATION OF 180 MILLILITERS OF DRUG
     Route: 065
  2. OXYCODONE [Concomitant]
     Active Substance: OXYCODONE
     Indication: Premedication
     Dosage: 80 MILLIGRAM
     Route: 061
  3. MORPHINE [Concomitant]
     Active Substance: MORPHINE
     Indication: Premedication
     Dosage: 6 MILLIGRAM
  4. NALOXONE [Concomitant]
     Active Substance: NALOXONE
     Indication: Premedication
     Dosage: 0.8 MILLIGRAM

REACTIONS (7)
  - Seizure like phenomena [Unknown]
  - Unresponsive to stimuli [Unknown]
  - Depressed level of consciousness [Unknown]
  - Dyskinesia [Unknown]
  - Agitation [Unknown]
  - Confusional state [Unknown]
  - Overdose [Unknown]
